FAERS Safety Report 6913545-7 (Version None)
Quarter: 2010Q3

REPORT INFORMATION
  Report Type: 
  Country: None (occurrence: None)
  Receive Date: 20100809
  Receipt Date: 20100726
  Transmission Date: 20110219
  Serious: Yes (Other)
  Sender: FDA-Public Use
  Company Number: GB-ELI_LILLY_AND_COMPANY-GB201006005135

PATIENT
  Sex: Male
  Weight: 95 kg

DRUGS (2)
  1. ZYPREXA [Suspect]
     Dosage: UNK, UNKNOWN
     Route: 065
  2. TEMAZEPAM [Concomitant]
     Indication: SEDATIVE THERAPY
     Dosage: 10 MG, UNKNOWN
     Route: 048
     Dates: start: 20100805, end: 20100805

REACTIONS (2)
  - BRAIN INJURY [None]
  - LIVER INJURY [None]
